FAERS Safety Report 4310773-4 (Version None)
Quarter: 2004Q1

REPORT INFORMATION
  Report Type: 
  Country: None (occurrence: None)
  Receive Date: 20040303
  Receipt Date: 20040109
  Transmission Date: 20041129
  Serious: Yes (Life-Threatening, Hospitalization, Disabling, Other)
  Sender: FDA-Public Use
  Company Number: WAES 0401USA00759

PATIENT
  Age: 71 Year
  Sex: Female
  Weight: 55 kg

DRUGS (5)
  1. SYNTHROID [Concomitant]
  2. TAMIFLU [Concomitant]
     Dates: start: 20031212, end: 20031201
  3. PROPRANOLOL HYDROCHLORIDE [Concomitant]
     Route: 048
  4. VIOXX [Suspect]
     Indication: PAIN
     Route: 048
     Dates: start: 20031212, end: 20031215
  5. VIOXX [Suspect]
     Route: 048
     Dates: start: 20031212, end: 20031215

REACTIONS (45)
  - ABDOMINAL INJURY [None]
  - ALANINE AMINOTRANSFERASE INCREASED [None]
  - ARTERIOSCLEROSIS [None]
  - ASCITES [None]
  - ASPARTATE AMINOTRANSFERASE INCREASED [None]
  - ASTHENIA [None]
  - BLOOD ALKALINE PHOSPHATASE INCREASED [None]
  - BLOOD BILIRUBIN INCREASED [None]
  - BLOOD CALCIUM DECREASED [None]
  - BLOOD GLUCOSE INCREASED [None]
  - BLOOD PH DECREASED [None]
  - BLOOD POTASSIUM DECREASED [None]
  - BLOOD PRESSURE SYSTOLIC INCREASED [None]
  - BLOOD UREA INCREASED [None]
  - BLOODY DISCHARGE [None]
  - BODY TEMPERATURE INCREASED [None]
  - BOWEL SOUNDS ABNORMAL [None]
  - CALCINOSIS [None]
  - CHOLECYSTITIS [None]
  - CHOLELITHIASIS [None]
  - DIVERTICULUM [None]
  - DUODENAL ULCER PERFORATION [None]
  - FALL [None]
  - GASTRIC PERFORATION [None]
  - GASTROINTESTINAL HAEMORRHAGE [None]
  - HAEMOGLOBIN DECREASED [None]
  - HEART RATE INCREASED [None]
  - INTESTINAL FUNCTIONAL DISORDER [None]
  - INTESTINAL PERFORATION [None]
  - LEUKOCYTOSIS [None]
  - PANCREATITIS [None]
  - PELVIC ABSCESS [None]
  - PNEUMONIA [None]
  - PO2 INCREASED [None]
  - POST PROCEDURAL BILE LEAK [None]
  - POST PROCEDURAL COMPLICATION [None]
  - PROCEDURAL HYPOTENSION [None]
  - PSEUDOMONAS INFECTION [None]
  - RESPIRATORY FAILURE [None]
  - RESPIRATORY RATE INCREASED [None]
  - SINUS TACHYCARDIA [None]
  - STAPHYLOCOCCAL INFECTION [None]
  - SYNCOPE [None]
  - VASCULAR INSUFFICIENCY [None]
  - VENTRICULAR ARRHYTHMIA [None]
